FAERS Safety Report 5490460-X (Version None)
Quarter: 2007Q4

REPORT INFORMATION
  Report Type: 
  Country: None (occurrence: None)
  Receive Date: 20071019
  Receipt Date: 20071016
  Transmission Date: 20080405
  Serious: Yes (Death)
  Sender: FDA-Public Use
  Company Number: PHEH2007US12266

PATIENT
  Sex: Male

DRUGS (2)
  1. FORADIL [Suspect]
  2. NITRO-DUR [Suspect]
     Dosage: .2MG/HR
     Route: 062

REACTIONS (1)
  - DEATH [None]
